FAERS Safety Report 5104646-7 (Version None)
Quarter: 2006Q3

REPORT INFORMATION
  Report Type: 
  Country: None (occurrence: None)
  Receive Date: 20060912
  Receipt Date: 20060912
  Transmission Date: 20061208
  Serious: No
  Sender: FDA-Public Use
  Company Number: None

PATIENT

DRUGS (4)
  1. IRESSA [Suspect]
     Indication: OESOPHAGEAL CARCINOMA
     Dosage: 250 MG DAILY PO
     Route: 048
     Dates: start: 20060116, end: 20060817
  2. ATENOLOL [Suspect]
     Indication: HYPERTENSION
     Dosage: 100 MG DAILY PO
     Route: 048
  3. NOVOLIN [Suspect]
     Indication: DIABETES MELLITUS
     Dosage: 10 UNITS DAILY SQ
     Route: 058
  4. ZOLOFT [Suspect]
     Indication: DEPRESSION
     Dosage: 25 MG DAILY PO
     Route: 048

REACTIONS (4)
  - MACULAR OEDEMA [None]
  - MACULOPATHY [None]
  - RETINAL VEIN OCCLUSION [None]
  - RETINAL VEIN THROMBOSIS [None]
